FAERS Safety Report 4987324-4 (Version None)
Quarter: 2006Q2

REPORT INFORMATION
  Report Type: 
  Country: None (occurrence: None)
  Receive Date: 20060501
  Receipt Date: 20051006
  Transmission Date: 20061013
  Serious: Yes (Death, Hospitalization)
  Sender: FDA-Public Use
  Company Number: US-MERCK-0510USA05958

PATIENT
  Age: 74 Year
  Sex: Male
  Weight: 69 kg

DRUGS (6)
  1. VIOXX [Suspect]
     Indication: ARTHRALGIA
     Route: 048
     Dates: start: 19990803, end: 20021101
  2. VIOXX [Suspect]
     Route: 048
     Dates: start: 20000803
  3. IBUPROFEN [Concomitant]
     Route: 065
  4. ACCUPRIL [Concomitant]
     Route: 065
  5. [THERAPY UNSPECIFIED] [Concomitant]
     Indication: DIURETIC THERAPY
     Route: 065
  6. HYDROCHLOROTHIAZIDE [Concomitant]
     Route: 065

REACTIONS (20)
  - ANAEMIA [None]
  - ASPIRATION [None]
  - CAROTID ARTERY OCCLUSION [None]
  - DYSARTHRIA [None]
  - HAEMORRHAGIC STROKE [None]
  - HYPERTENSION [None]
  - HYPOTENSION [None]
  - INTERVERTEBRAL DISC OPERATION [None]
  - INTERVERTEBRAL DISC PROTRUSION [None]
  - MEMORY IMPAIRMENT [None]
  - MYOCARDIAL INFARCTION [None]
  - PALPITATIONS [None]
  - PROSTATE EXAMINATION ABNORMAL [None]
  - PROSTATIC SPECIFIC ANTIGEN INCREASED [None]
  - PULMONARY OEDEMA [None]
  - RESPIRATORY FAILURE [None]
  - SYNCOPE [None]
  - TACHYCARDIA [None]
  - TRANSIENT ISCHAEMIC ATTACK [None]
  - VENTRICULAR FIBRILLATION [None]
